FAERS Safety Report 5594913-5 (Version None)
Quarter: 2008Q1

REPORT INFORMATION
  Report Type: 
  Country: None (occurrence: None)
  Receive Date: 20080117
  Receipt Date: 20080110
  Transmission Date: 20080703
  Serious: Yes (Hospitalization)
  Sender: FDA-Public Use
  Company Number: BE-TEVA-166227ISR

PATIENT
  Sex: Female
  Weight: 56 kg

DRUGS (4)
  1. FLUOROURACIL [Suspect]
     Route: 040
     Dates: start: 20071227
  2. FLUOROURACIL [Suspect]
     Route: 041
     Dates: start: 20071227
  3. CALCIUM LEVOFOLINATE [Suspect]
     Route: 042
     Dates: start: 20071227
  4. IRINOTECAN [Suspect]
     Route: 042
     Dates: start: 20071227

REACTIONS (3)
  - DEHYDRATION [None]
  - DIARRHOEA [None]
  - FUNGAL INFECTION [None]
